FAERS Safety Report 18635971 (Version 3)
Quarter: 2021Q1

REPORT INFORMATION
  Report Type: Spontaneous
  Country: US (occurrence: US)
  Receive Date: 20201218
  Receipt Date: 20210324
  Transmission Date: 20210419
  Serious: Yes (Other)
  Sender: FDA-Public Use
  Company Number: US-ELI_LILLY_AND_COMPANY-US202012006978

PATIENT
  Sex: Female

DRUGS (4)
  1. FORTEO [Suspect]
     Active Substance: TERIPARATIDE
     Indication: PRODUCT USED FOR UNKNOWN INDICATION
     Dosage: UNK UNK, UNKNOWN
     Route: 065
     Dates: start: 202002
  2. FORTEO [Suspect]
     Active Substance: TERIPARATIDE
     Dosage: UNK UNK, UNKNOWN
     Route: 065
  3. FORTEO [Suspect]
     Active Substance: TERIPARATIDE
     Dosage: UNK UNK, UNKNOWN
     Route: 065
  4. FORTEO [Suspect]
     Active Substance: TERIPARATIDE
     Indication: PRODUCT USED FOR UNKNOWN INDICATION
     Dosage: UNK UNK, UNKNOWN
     Route: 065
     Dates: start: 202002

REACTIONS (17)
  - Urticaria [Unknown]
  - Erythema [Unknown]
  - Injection site pain [Unknown]
  - Injection site swelling [Unknown]
  - Burning sensation [Unknown]
  - Injection site urticaria [Unknown]
  - Fracture [Unknown]
  - Bone pain [Unknown]
  - Sleep disorder due to general medical condition, insomnia type [Unknown]
  - Pain [Unknown]
  - Pruritus [Unknown]
  - Alopecia [Unknown]
  - Stress [Unknown]
  - Mass [Unknown]
  - Chills [Unknown]
  - Throat tightness [Unknown]
  - Rash [Unknown]

NARRATIVE: CASE EVENT DATE: 2020
